FAERS Safety Report 5201203-9 (Version None)
Quarter: 2007Q1

REPORT INFORMATION
  Report Type: 
  Country: None (occurrence: None)
  Receive Date: 20070108
  Receipt Date: 20061228
  Transmission Date: 20070707
  Serious: Yes (Hospitalization)
  Sender: FDA-Public Use
  Company Number: DE-ELI_LILLY_AND_COMPANY-DE200611004093

PATIENT
  Age: 15 Year
  Sex: Female
  Weight: 68.4 kg

DRUGS (5)
  1. STRATTERA [Suspect]
     Indication: ATTENTION DEFICIT/HYPERACTIVITY DISORDER
     Dosage: 78 MG, DAILY (1/D)
     Route: 048
     Dates: end: 20060601
  2. STRATTERA [Suspect]
     Dosage: 40 MG, DAILY (1/D)
     Route: 048
     Dates: start: 20060801, end: 20060901
  3. STRATTERA [Suspect]
     Dosage: 60 MG, DAILY (1/D)
     Route: 048
     Dates: start: 20060601, end: 20060801
  4. STRATTERA [Suspect]
     Route: 048
     Dates: start: 20051201
  5. STRATTERA [Suspect]
     Dosage: 10 MG, DAILY (1/D)
     Route: 048
     Dates: start: 20061201

REACTIONS (6)
  - ASPARTATE AMINOTRANSFERASE INCREASED [None]
  - BLOOD PRESSURE DECREASED [None]
  - CONSTIPATION [None]
  - JOINT DISLOCATION [None]
  - SUPRAVENTRICULAR TACHYCARDIA [None]
  - VOMITING [None]
